FAERS Safety Report 6666335-7 (Version None)
Quarter: 2010Q1

REPORT INFORMATION
  Report Type: 
  Country: None (occurrence: None)
  Receive Date: 20100331
  Receipt Date: 20100318
  Transmission Date: 20100710
  Serious: Yes (Hospitalization)
  Sender: FDA-Public Use
  Company Number: 009143

PATIENT
  Sex: Male
  Weight: 92 kg

DRUGS (5)
  1. CERTOLIZUMAB PEGOL [Suspect]
     Indication: RHEUMATOID ARTHRITIS
     Dosage: 200 MG 1X/2 WEEKS SUBCUTANEOUS
     Route: 058
     Dates: start: 20090909, end: 20100125
  2. METHOTREXATE [Concomitant]
  3. CELEBREX [Concomitant]
  4. FOLIC ACID [Concomitant]
  5. ECOTRIN [Concomitant]

REACTIONS (3)
  - ATRIAL FIBRILLATION [None]
  - PERICARDIAL EFFUSION [None]
  - VIRAL PERICARDITIS [None]
